FAERS Safety Report 5448531-X (Version None)
Quarter: 2007Q3

REPORT INFORMATION
  Report Type: 
  Country: None (occurrence: None)
  Receive Date: 20070911
  Receipt Date: 20070904
  Transmission Date: 20080115
  Serious: Yes (Hospitalization)
  Sender: FDA-Public Use
  Company Number: US-ELI_LILLY_AND_COMPANY-US200709000431

PATIENT
  Age: 80 Year
  Sex: Female

DRUGS (4)
  1. FORTEO [Suspect]
     Indication: OSTEOPOROSIS
     Dates: start: 20070201
  2. RESTASIS [Concomitant]
     Indication: DRY EYE
  3. NEXIUM [Concomitant]
     Indication: HIATUS HERNIA
  4. DIOVAN [Concomitant]
     Indication: HEART RATE INCREASED

REACTIONS (3)
  - LOSS OF CONSCIOUSNESS [None]
  - PNEUMONIA [None]
  - VOMITING [None]
